FAERS Safety Report 19268417 (Version 1)
Quarter: 2021Q2

REPORT INFORMATION
  Report Type: Spontaneous
  Country: US (occurrence: US)
  Receive Date: 20210517
  Receipt Date: 20210517
  Transmission Date: 20210717
  Serious: Yes (Hospitalization)
  Sender: FDA-Public Use
  Company Number: None

PATIENT
  Age: 35 Year
  Sex: Female
  Weight: 96.75 kg

DRUGS (1)
  1. LEVOFLOXACIN ? IV TREATMENT AT HOSPITAL [Suspect]
     Active Substance: LEVOFLOXACIN
     Indication: PNEUMONIA
     Dates: start: 20200809, end: 20200818

REACTIONS (10)
  - Neuropathy peripheral [None]
  - Tendon pain [None]
  - Arthritis [None]
  - Sleep disorder [None]
  - Muscle atrophy [None]
  - Confusional state [None]
  - Amnesia [None]
  - Feeling abnormal [None]
  - Arthralgia [None]
  - Blood glucose abnormal [None]

NARRATIVE: CASE EVENT DATE: 20200809
